FAERS Safety Report 11048724 (Version 2)
Quarter: 2015Q2

REPORT INFORMATION
  Report Type: Spontaneous
  Country: DE (occurrence: DE)
  Receive Date: 20150420
  Receipt Date: 20150521
  Transmission Date: 20150821
  Serious: Yes (Other)
  Sender: FDA-Public Use
  Company Number: DE-GILEAD-2015-0148700

PATIENT
  Age: 45 Year
  Sex: Male
  Weight: 79 kg

DRUGS (1)
  1. EVIPLERA [Suspect]
     Active Substance: EMTRICITABINE\RILPIVIRINE\TENOFOVIR DISOPROXIL FUMARATE
     Indication: HIV INFECTION
     Dosage: UNK
     Route: 048
     Dates: start: 201308, end: 201504

REACTIONS (2)
  - Osteoporosis [Unknown]
  - Bone pain [Unknown]

NARRATIVE: CASE EVENT DATE: 201504
